FAERS Safety Report 23878859 (Version 1)
Quarter: 2024Q2

REPORT INFORMATION
  Report Type: Spontaneous
  Country: US (occurrence: None)
  Receive Date: 20240520
  Receipt Date: 20240520
  Transmission Date: 20240715
  Serious: Yes (Hospitalization)
  Sender: FDA-Public Use
  Company Number: None

PATIENT
  Age: 45 Year
  Sex: Male
  Weight: 72 kg

DRUGS (1)
  1. MIRCERA [Suspect]
     Active Substance: METHOXY POLYETHYLENE GLYCOL-EPOETIN BETA
     Indication: Anaemia
     Dosage: OTHER FREQUENCY : OTHER FREQUENCY?OTHER ROUTE : OTHER ROUTE ???HHD
     Route: 050
     Dates: start: 20240422, end: 20240506

REACTIONS (4)
  - Unresponsive to stimuli [None]
  - Pulse absent [None]
  - Dialysis [None]
  - Resuscitation [None]

NARRATIVE: CASE EVENT DATE: 20240506
